FAERS Safety Report 12187924 (Version 1)
Quarter: 2016Q1

REPORT INFORMATION
  Report Type: Spontaneous
  Country: US (occurrence: None)
  Receive Date: 20160316
  Receipt Date: 20160316
  Transmission Date: 20160526
  Serious: Yes (Hospitalization, Other)
  Sender: FDA-Public Use
  Company Number: None

PATIENT
  Age: 54 Year
  Sex: Female
  Weight: 100 kg

DRUGS (4)
  1. HYLAND^S LEG CRAMP PM [Concomitant]
  2. HYLAND^S RESTFUL LEG [Concomitant]
  3. HYLAND^S RESTFUL LEGS HYLAND^S [Suspect]
     Active Substance: HOMEOPATHICS
     Indication: RESTLESS LEGS SYNDROME
     Route: 048
     Dates: start: 20140601, end: 20141204
  4. HYLAND^S RESTFUL LEGS HYLAND^S [Suspect]
     Active Substance: HOMEOPATHICS
     Indication: ANXIETY
     Route: 048
     Dates: start: 20140601, end: 20141204

REACTIONS (6)
  - Liver transplant [None]
  - Abdominal distension [None]
  - Viral infection [None]
  - Abdominal pain [None]
  - Hepatic encephalopathy [None]
  - Acute hepatic failure [None]

NARRATIVE: CASE EVENT DATE: 20141204
